FAERS Safety Report 17485518 (Version 1)
Quarter: 2020Q1

REPORT INFORMATION
  Report Type: Spontaneous
  Country: US (occurrence: US)
  Receive Date: 20200302
  Receipt Date: 20200302
  Transmission Date: 20200409
  Serious: No
  Sender: FDA-Public Use
  Company Number: US-SA-2020SA047563

PATIENT
  Age: 23 Year
  Sex: Male

DRUGS (3)
  1. TRIAMCINOLONE ACETONIDE. [Concomitant]
     Active Substance: TRIAMCINOLONE ACETONIDE
  2. DUPIXENT [Suspect]
     Active Substance: DUPILUMAB
     Indication: DERMATITIS ATOPIC
     Dosage: 300 MG, QOW
     Route: 058
     Dates: start: 20200115
  3. EUCERIN [SALICYLIC ACID] [Concomitant]

REACTIONS (7)
  - Ocular hyperaemia [Unknown]
  - Eye pain [Unknown]
  - Dry skin [Unknown]
  - Rash [Unknown]
  - Dry eye [Unknown]
  - Insomnia [Unknown]
  - Erythema [Unknown]

NARRATIVE: CASE EVENT DATE: 2020
